FAERS Safety Report 5503479-7 (Version None)
Quarter: 2007Q4

REPORT INFORMATION
  Report Type: 
  Country: None (occurrence: None)
  Receive Date: 20071029
  Receipt Date: 20071011
  Transmission Date: 20080405
  Serious: Yes (Hospitalization, Other)
  Sender: FDA-Public Use
  Company Number: FACT0700199

PATIENT
  Sex: Female

DRUGS (2)
  1. FACTIVE [Suspect]
     Indication: BRONCHITIS
     Dosage: 320 MG, QD, ORAL
     Route: 048
     Dates: start: 20070901, end: 20070901
  2. DEXAMETHASONE TAB [Concomitant]

REACTIONS (2)
  - ANAPHYLACTIC SHOCK [None]
  - RASH VESICULAR [None]
